FAERS Safety Report 9017465 (Version 1)
Quarter: 2013Q1

REPORT INFORMATION
  Report Type: Spontaneous
  Country: DK (occurrence: DK)
  Receive Date: 20130117
  Receipt Date: 20130117
  Transmission Date: 20140127
  Serious: Yes (Other)
  Sender: FDA-Public Use
  Company Number: DK-PFIZER INC-2013019365

PATIENT
  Age: 5 Decade
  Sex: Male

DRUGS (1)
  1. EFEXOR DEPOT [Suspect]
     Dosage: 300 MG, 1X/DAY

REACTIONS (3)
  - Blood pressure orthostatic decreased [Unknown]
  - Dizziness [Unknown]
  - Tachycardia [Unknown]
